FAERS Safety Report 19585857 (Version 1)
Quarter: 2021Q3

REPORT INFORMATION
  Report Type: Spontaneous
  Country: US (occurrence: US)
  Receive Date: 20210720
  Receipt Date: 20210720
  Transmission Date: 20211014
  Serious: Yes (Other)
  Sender: FDA-Public Use
  Company Number: US-PFIZER INC-2021903451

PATIENT
  Sex: Female

DRUGS (1)
  1. CYTOMEL [Suspect]
     Active Substance: LIOTHYRONINE SODIUM
     Dosage: 5 MG, 2X/DAY (TWICE DAILY)

REACTIONS (9)
  - Haemorrhagic stroke [Unknown]
  - Intervertebral disc degeneration [Unknown]
  - Diabetes mellitus [Unknown]
  - Pain [Unknown]
  - Autoimmune thyroiditis [Unknown]
  - Adrenal adenoma [Unknown]
  - Thyroid disorder [Unknown]
  - Intervertebral disc protrusion [Unknown]
  - Blood pressure increased [Unknown]

NARRATIVE: CASE EVENT DATE: 2015
